FAERS Safety Report 11218547 (Version 1)
Quarter: 2015Q2

REPORT INFORMATION
  Report Type: Spontaneous
  Country: US (occurrence: US)
  Receive Date: 20150625
  Receipt Date: 20150625
  Transmission Date: 20150821
  Serious: No
  Sender: FDA-Public Use
  Company Number: US-MYLANLABS-2014S1017043

PATIENT
  Age: 80 Year
  Sex: Male
  Weight: 63.5 kg

DRUGS (3)
  1. BUDESONIDE. [Concomitant]
     Active Substance: BUDESONIDE
     Indication: CHRONIC OBSTRUCTIVE PULMONARY DISEASE
     Dosage: UNK UNK,BID
     Route: 055
     Dates: start: 20140616
  2. PERFOROMIST [Suspect]
     Active Substance: FORMOTEROL FUMARATE DIHYDRATE
     Dosage: 2 ML,BID
     Route: 055
     Dates: start: 20140616
  3. ALBUTEROL. [Concomitant]
     Active Substance: ALBUTEROL
     Indication: CHRONIC OBSTRUCTIVE PULMONARY DISEASE
     Dosage: UNK UNK,PRN
     Route: 055

REACTIONS (3)
  - Dyspnoea [Not Recovered/Not Resolved]
  - Drug ineffective [Not Recovered/Not Resolved]
  - Cough [Not Recovered/Not Resolved]

NARRATIVE: CASE EVENT DATE: 201406
